FAERS Safety Report 24795095 (Version 1)
Quarter: 2024Q4

REPORT INFORMATION
  Report Type: Spontaneous
  Country: CN (occurrence: CN)
  Receive Date: 20241231
  Receipt Date: 20241231
  Transmission Date: 20250114
  Serious: Yes (Hospitalization, Other)
  Sender: DAIICHI
  Company Number: CN-DSJP-DS-2024-115537-CN

PATIENT
  Age: 76 Year
  Sex: Female
  Weight: 58 kg

DRUGS (3)
  1. EDOXABAN TOSYLATE [Suspect]
     Active Substance: EDOXABAN TOSYLATE
     Indication: Symptomatic treatment
     Dosage: 30 MG, QD
     Route: 048
     Dates: start: 20240628, end: 20241003
  2. CLOPIDOGREL BISULFATE [Suspect]
     Active Substance: CLOPIDOGREL BISULFATE
     Indication: Symptomatic treatment
     Dosage: 75 MG, QD
     Route: 048
     Dates: start: 20240628, end: 20241029
  3. ASPIRIN [Suspect]
     Active Substance: ASPIRIN
     Indication: Symptomatic treatment
     Dosage: 0.1 G, QD
     Route: 048
     Dates: start: 20240628, end: 20241003

REACTIONS (8)
  - Lower gastrointestinal haemorrhage [Recovering/Resolving]
  - Asthenia [Unknown]
  - Vomiting [Unknown]
  - Diarrhoea [Unknown]
  - Vision blurred [Unknown]
  - Nausea [Unknown]
  - Abdominal pain [Unknown]
  - Haemoglobin decreased [Unknown]

NARRATIVE: CASE EVENT DATE: 20241003
